FAERS Safety Report 16955963 (Version 1)
Quarter: 2019Q4

REPORT INFORMATION
  Report Type: Spontaneous
  Country: US (occurrence: US)
  Receive Date: 20191023
  Receipt Date: 20191023
  Transmission Date: 20200122
  Serious: Yes (Life-Threatening, Hospitalization, Disabling)
  Sender: FDA-Public Use
  Company Number: None

PATIENT
  Age: 45 Year
  Sex: Female
  Weight: 71 kg

DRUGS (2)
  1. DISULFIRAM. [Suspect]
     Active Substance: DISULFIRAM
     Indication: ALCOHOL USE DISORDER
     Route: 048
     Dates: start: 20190710, end: 20190715
  2. DISULFIRAM. [Suspect]
     Active Substance: DISULFIRAM
     Indication: ALCOHOL USE DISORDER
     Route: 048
     Dates: start: 20190715, end: 20190715

REACTIONS (3)
  - Drug-induced liver injury [None]
  - Liver transplant [None]
  - Rash [None]

NARRATIVE: CASE EVENT DATE: 20190909
